FAERS Safety Report 5079005-6 (Version None)
Quarter: 2006Q3

REPORT INFORMATION
  Report Type: 
  Country: None (occurrence: None)
  Receive Date: 20060814
  Receipt Date: 20060803
  Transmission Date: 20061208
  Serious: Yes (Disabling)
  Sender: FDA-Public Use
  Company Number: PHRM2006FR02258

PATIENT
  Age: 76 Year
  Sex: Male

DRUGS (3)
  1. ZOMETA [Suspect]
     Indication: METASTASES TO BONE
     Dosage: 4 MG, QMO
     Route: 042
     Dates: start: 20030115, end: 20060424
  2. TAXOL [Concomitant]
     Indication: PROSTATE CANCER METASTATIC
     Dosage: 80 G/M2 QW
     Route: 042
  3. HORMONES [Concomitant]
     Indication: PROSTATE CANCER METASTATIC

REACTIONS (3)
  - BONE DEBRIDEMENT [None]
  - OSTEONECROSIS [None]
  - TOOTH EXTRACTION [None]
